FAERS Safety Report 24270898 (Version 1)
Quarter: 2024Q3

REPORT INFORMATION
  Report Type: Spontaneous
  Country: KR (occurrence: KR)
  Receive Date: 20240831
  Receipt Date: 20240831
  Transmission Date: 20241016
  Serious: Yes (Other)
  Sender: AMGEN
  Company Number: KR-AMGEN-KORSP2024171802

PATIENT
  Age: 52 Year
  Sex: Female

DRUGS (2)
  1. PROLIA [Suspect]
     Active Substance: DENOSUMAB
     Indication: Menopausal disorder
     Dosage: 60 MILLIGRAM, QD
     Route: 058
     Dates: start: 20210420, end: 20210420
  2. TIBOLONE [Suspect]
     Active Substance: TIBOLONE
     Indication: Menopausal disorder
     Dosage: 2 MILLIGRAM
     Route: 048
     Dates: start: 20210319, end: 20210507

REACTIONS (1)
  - Erythema multiforme [Recovered/Resolved]

NARRATIVE: CASE EVENT DATE: 20210504
